FAERS Safety Report 5119686-1 (Version None)
Quarter: 2006Q4

REPORT INFORMATION
  Report Type: 
  Country: None (occurrence: None)
  Receive Date: 20061003
  Receipt Date: 20060906
  Transmission Date: 20070319
  Serious: Yes (Hospitalization)
  Sender: FDA-Public Use
  Company Number: BR-AVENTIS-200619492GDDC

PATIENT
  Age: 67 Year
  Sex: Female
  Weight: 70 kg

DRUGS (2)
  1. FLAGYL [Suspect]
     Indication: HELMINTHIC INFECTION
     Route: 048
     Dates: start: 20060905, end: 20060905
  2. SOTALOL HYDROCHLORIDE [Concomitant]
     Indication: CARDIAC DISORDER
     Dosage: DOSE: 1 TABLET
     Route: 048

REACTIONS (1)
  - HAEMATOCHEZIA [None]
